FAERS Safety Report 8094368-5 (Version None)
Quarter: 2012Q1

REPORT INFORMATION
  Report Type: 
  Country: None (occurrence: None)
  Receive Date: 20120130
  Receipt Date: 20120120
  Transmission Date: 20120608
  Serious: Yes (Hospitalization)
  Sender: FDA-Public Use
  Company Number: US-AMGEN-USASP2012004708

PATIENT
  Age: 74 Year
  Sex: Male

DRUGS (1)
  1. ENBREL [Suspect]
     Indication: RHEUMATOID ARTHRITIS
     Dosage: UNK
     Dates: start: 20070112

REACTIONS (8)
  - KNEE ARTHROPLASTY [None]
  - CHOLECYSTECTOMY [None]
  - COLD SWEAT [None]
  - HEPATITIS INFECTIOUS [None]
  - INJECTION SITE PAIN [None]
  - ARTHRALGIA [None]
  - BODY TEMPERATURE INCREASED [None]
  - SOMNOLENCE [None]
